FAERS Safety Report 8210255-3 (Version None)
Quarter: 2012Q1

REPORT INFORMATION
  Report Type: 
  Country: None (occurrence: None)
  Receive Date: 20120314
  Receipt Date: 20120106
  Transmission Date: 20120608
  Serious: No
  Sender: FDA-Public Use
  Company Number: US-ASTRAZENECA-2011SE77056

PATIENT
  Age: 80 Year
  Sex: Male

DRUGS (3)
  1. CRESTOR [Suspect]
     Route: 048
  2. PROSTATE MEDICATION [Suspect]
     Route: 065
  3. TOPROL-XL [Suspect]
     Route: 048

REACTIONS (5)
  - HYPOTENSION [None]
  - MUSCLE SPASMS [None]
  - PROSTATIC DISORDER [None]
  - DYSPEPSIA [None]
  - SPINAL COLUMN STENOSIS [None]
